FAERS Safety Report 5562485-7 (Version None)
Quarter: 2007Q4

REPORT INFORMATION
  Report Type: 
  Country: None (occurrence: None)
  Receive Date: 20071215
  Receipt Date: 20061214
  Transmission Date: 20080405
  Serious: No
  Sender: FDA-Public Use
  Company Number: US-AMGEN-US195102

PATIENT
  Sex: Female

DRUGS (8)
  1. ENBREL [Suspect]
     Indication: RHEUMATOID ARTHRITIS
     Route: 058
     Dates: start: 20060809
  2. DARVOCET [Concomitant]
     Route: 065
     Dates: start: 20060825
  3. METHYLPREDNISOLONE [Concomitant]
     Route: 065
  4. OMEPRAZOLE [Concomitant]
     Route: 065
  5. SYNTHROID [Concomitant]
     Route: 065
  6. ESTROGEN NOS [Concomitant]
     Route: 065
  7. HYDROXYCHLOROQUINE SULFATE [Concomitant]
     Route: 065
  8. CLONIDINE [Concomitant]
     Route: 065

REACTIONS (4)
  - ANAEMIA [None]
  - ARTHRALGIA [None]
  - FATIGUE [None]
  - GLOSSODYNIA [None]
